FAERS Safety Report 12412330 (Version 1)
Quarter: 2016Q2

REPORT INFORMATION
  Report Type: Report from Study
  Country: US (occurrence: US)
  Receive Date: 20160527
  Receipt Date: 20160527
  Transmission Date: 20160815
  Serious: Yes (Hospitalization, Other)
  Sender: FDA-Public Use
  Company Number: US-GILEAD-2016-0210068

PATIENT
  Age: 28 Year
  Sex: Male

DRUGS (34)
  1. AZTREONAM LYSINE [Suspect]
     Active Substance: AZTREONAM LYSINE
     Indication: CYSTIC FIBROSIS
     Dosage: 75 MG, UNK
     Route: 055
     Dates: start: 20151030
  2. CULTURELLE DS [Concomitant]
     Route: 048
  3. STARLIX [Concomitant]
     Active Substance: NATEGLINIDE
     Route: 048
  4. TIGECYCLINE. [Concomitant]
     Active Substance: TIGECYCLINE
     Route: 042
  5. FLONASE [Concomitant]
     Active Substance: FLUTICASONE PROPIONATE
     Route: 065
  6. INSULIN [Concomitant]
     Active Substance: INSULIN NOS
     Dosage: SLIDING SCALE
     Route: 065
  7. TEDIZOLID [Concomitant]
     Route: 065
  8. PREVACID [Concomitant]
     Active Substance: LANSOPRAZOLE
     Route: 065
  9. OSCAL D [Concomitant]
     Active Substance: CALCIUM CARBONATE\CHOLECALCIFEROL
     Route: 048
  10. BACTRIM DS [Concomitant]
     Active Substance: SULFAMETHOXAZOLE\TRIMETHOPRIM
     Dosage: UNK
     Route: 048
  11. PANTOPRAZOLE [Concomitant]
     Active Substance: PANTOPRAZOLE SODIUM
     Route: 048
  12. BACTRIM DS [Concomitant]
     Active Substance: SULFAMETHOXAZOLE\TRIMETHOPRIM
     Dosage: UNK
     Route: 048
     Dates: start: 201505
  13. VITAMIN E                          /00110501/ [Concomitant]
     Active Substance: TOCOPHEROL
     Route: 048
  14. ALLEGRA-D                          /01367401/ [Concomitant]
     Route: 065
  15. TYGACIL [Concomitant]
     Active Substance: TIGECYCLINE
     Route: 065
  16. ALBUTEROL                          /00139501/ [Concomitant]
     Active Substance: ALBUTEROL
     Route: 055
  17. PULMOZYME [Concomitant]
     Active Substance: DORNASE ALFA
     Route: 048
  18. FLUCONAZOLE. [Concomitant]
     Active Substance: FLUCONAZOLE
     Route: 048
  19. CIPRO [Concomitant]
     Active Substance: CIPROFLOXACIN HYDROCHLORIDE
     Dosage: 400 MG, EVERY 12 HOURS
     Route: 042
  20. PREDNISONE. [Concomitant]
     Active Substance: PREDNISONE
     Route: 065
  21. DEPAKOTE [Concomitant]
     Active Substance: DIVALPROEX SODIUM
     Route: 065
  22. NOVOLOG [Concomitant]
     Active Substance: INSULIN ASPART
     Route: 058
  23. ZYVOX [Concomitant]
     Active Substance: LINEZOLID
     Route: 048
  24. AQUADEKS                           /07679501/ [Concomitant]
     Route: 048
  25. HYPERTONIC SALINE SOLUTION [Concomitant]
     Active Substance: SODIUM CHLORIDE
     Route: 065
  26. SALINE                             /00075401/ [Concomitant]
     Active Substance: SODIUM CHLORIDE
     Route: 045
  27. AMIKACIN [Concomitant]
     Active Substance: AMIKACIN
     Route: 042
  28. AMIKACIN [Concomitant]
     Active Substance: AMIKACIN
     Dosage: UNK
     Route: 055
  29. MEROPENEM. [Concomitant]
     Active Substance: MEROPENEM
     Route: 042
  30. TOBI [Concomitant]
     Active Substance: TOBRAMYCIN
     Route: 065
  31. DIVALPROEX SODIUM. [Concomitant]
     Active Substance: DIVALPROEX SODIUM
     Route: 048
  32. ALLEGRA [Concomitant]
     Active Substance: FEXOFENADINE HYDROCHLORIDE
     Route: 048
  33. ZENPEP [Concomitant]
     Active Substance: PANCRELIPASE AMYLASE\PANCRELIPASE LIPASE\PANCRELIPASE PROTEASE
     Route: 048
  34. CIPRO [Concomitant]
     Active Substance: CIPROFLOXACIN HYDROCHLORIDE
     Dosage: UNK
     Route: 065
     Dates: start: 201605

REACTIONS (11)
  - Tinnitus [Unknown]
  - Mycobacterium abscessus infection [Unknown]
  - Infective pulmonary exacerbation of cystic fibrosis [Unknown]
  - Rash [Unknown]
  - Pancreatic insufficiency [Unknown]
  - Palpitations [Unknown]
  - Infective pulmonary exacerbation of cystic fibrosis [Recovered/Resolved]
  - Cystic fibrosis pancreatic [Unknown]
  - Bronchiectasis [Unknown]
  - Cystic fibrosis related diabetes [Unknown]
  - Infective exacerbation of bronchiectasis [Unknown]
